FAERS Safety Report 7221229-3 (Version None)
Quarter: 2011Q1

REPORT INFORMATION
  Report Type: 
  Country: None (occurrence: None)
  Receive Date: 20110112
  Receipt Date: 20110110
  Transmission Date: 20110831
  Serious: Yes (Death)
  Sender: FDA-Public Use
  Company Number: ES-SANOFI-AVENTIS-2011SA001745

PATIENT
  Age: 59 Year
  Sex: Male
  Weight: 84 kg

DRUGS (5)
  1. OMEPRAZOLE [Concomitant]
  2. CISPLATIN [Suspect]
     Indication: NON-SMALL CELL LUNG CANCER
     Route: 042
     Dates: start: 20101228, end: 20101228
  3. DOCETAXEL [Suspect]
     Indication: NON-SMALL CELL LUNG CANCER
     Route: 041
     Dates: start: 20101228, end: 20101228
  4. DEXAMETHASONE [Concomitant]
  5. APREPITANT [Concomitant]

REACTIONS (1)
  - SUDDEN DEATH [None]
